FAERS Safety Report 10587172 (Version 2)
Quarter: 2014Q4

REPORT INFORMATION
  Report Type: Report from Study
  Country: None (occurrence: CA)
  Receive Date: 20141117
  Receipt Date: 20141117
  Transmission Date: 20150529
  Serious: Yes (Death, Other)
  Sender: FDA-Public Use
  Company Number: CA-CELGENE-028-21880-13011277

PATIENT

DRUGS (3)
  1. DEXAMETHASONE. [Concomitant]
     Active Substance: DEXAMETHASONE
     Indication: NAUSEA
     Route: 065
  2. REVLIMID [Suspect]
     Active Substance: LENALIDOMIDE
     Indication: NON-HODGKIN^S LYMPHOMA
     Dosage: 25 MILLIGRAM
     Route: 048
  3. DEXAMETHASONE. [Concomitant]
     Active Substance: DEXAMETHASONE
     Indication: PERITUMOURAL OEDEMA

REACTIONS (53)
  - Acute myocardial infarction [Unknown]
  - Febrile neutropenia [Unknown]
  - Dehydration [Unknown]
  - Diarrhoea [Unknown]
  - Anaemia [Unknown]
  - Lymphopenia [Unknown]
  - Cough [Unknown]
  - Muscle spasms [Unknown]
  - Chills [Unknown]
  - Vomiting [Unknown]
  - Disease progression [Fatal]
  - Fatigue [Unknown]
  - Hypersensitivity [Unknown]
  - Oedema peripheral [Unknown]
  - Dizziness [Unknown]
  - Hypothyroidism [Unknown]
  - Small intestinal obstruction [Fatal]
  - Pain [Unknown]
  - Dry skin [Unknown]
  - Mucosal inflammation [Unknown]
  - Dyspnoea [Unknown]
  - Arrhythmia [Unknown]
  - Pulmonary embolism [Unknown]
  - Nausea [Unknown]
  - Pneumonia [Fatal]
  - Cognitive disorder [Unknown]
  - Respiratory failure [Unknown]
  - Haemorrhage [Unknown]
  - Muscular weakness [Unknown]
  - Clostridium difficile infection [Unknown]
  - Rash [Unknown]
  - Renal failure [Unknown]
  - Constipation [Unknown]
  - Back pain [Unknown]
  - Infection [Fatal]
  - Seizure [Unknown]
  - Pneumonitis [Unknown]
  - Neutropenia [Unknown]
  - Abdominal pain [Unknown]
  - Pyrexia [Unknown]
  - Weight decreased [Unknown]
  - Lung abscess [Fatal]
  - Lung disorder [Unknown]
  - Insomnia [Unknown]
  - Decreased appetite [Unknown]
  - Pruritus [Unknown]
  - Asthenia [Unknown]
  - Influenza [Unknown]
  - Gout [Unknown]
  - Arrhythmia supraventricular [Unknown]
  - Hypertension [Unknown]
  - Thrombocytopenia [Unknown]
  - Tumour flare [Unknown]
